FAERS Safety Report 9648759 (Version 1)
Quarter: 2013Q4

REPORT INFORMATION
  Report Type: Spontaneous
  Country: US (occurrence: US)
  Receive Date: 20131028
  Receipt Date: 20131028
  Transmission Date: 20140711
  Serious: No
  Sender: FDA-Public Use
  Company Number: US-TEVA-440682USA

PATIENT
  Sex: 0

DRUGS (2)
  1. PROAIR HFA [Suspect]
  2. UNSPECIFIED EMERGENCY INHALER [Concomitant]

REACTIONS (3)
  - Asthma [Unknown]
  - Dyspnoea [Unknown]
  - Device malfunction [Unknown]
